FAERS Safety Report 4965181-X (Version None)
Quarter: 2006Q1

REPORT INFORMATION
  Report Type: 
  Country: None (occurrence: None)
  Receive Date: 20060207
  Receipt Date: 20050419
  Transmission Date: 20060701
  Serious: No
  Sender: FDA-Public Use
  Company Number: 243209

PATIENT
  Age: 44 Year
  Sex: Female

DRUGS (2)
  1. NOVOLOG [Suspect]
     Indication: INSULIN-REQUIRING TYPE II DIABETES MELLITUS
     Dosage: SLIDING SCALE, SUBCUTANEOUS
     Route: 058
     Dates: start: 20040801
  2. LANTUS [Concomitant]

REACTIONS (1)
  - ANAPHYLACTIC REACTION [None]
